FAERS Safety Report 8253760-6 (Version None)
Quarter: 2012Q2

REPORT INFORMATION
  Report Type: 
  Country: None (occurrence: None)
  Receive Date: 20120402
  Receipt Date: 20120313
  Transmission Date: 20120825
  Serious: Yes (Hospitalization)
  Sender: FDA-Public Use
  Company Number: US-AMGEN-USASP2012016438

PATIENT
  Age: 56 Year
  Sex: Female

DRUGS (2)
  1. ENBREL [Suspect]
     Indication: RHEUMATOID ARTHRITIS
     Dosage: 50 MG, QWK
     Dates: start: 20030120
  2. METHOTREXATE [Concomitant]
     Dosage: UNK
     Dates: start: 20010101

REACTIONS (6)
  - BUNION [None]
  - PNEUMONIA [None]
  - URINARY TRACT INFECTION [None]
  - BRONCHITIS [None]
  - RESPIRATORY TRACT INFECTION [None]
  - FOOT FRACTURE [None]
